FAERS Safety Report 18570170 (Version 1)
Quarter: 2020Q4

REPORT INFORMATION
  Report Type: Spontaneous
  Country: US (occurrence: US)
  Receive Date: 20201202
  Receipt Date: 20201202
  Transmission Date: 20210114
  Serious: No
  Sender: FDA-Public Use
  Company Number: US-009507513-2011USA013701

PATIENT
  Age: 36 Year
  Sex: Female
  Weight: 81.63 kg

DRUGS (1)
  1. NEXPLANON [Suspect]
     Active Substance: ETONOGESTREL
     Dosage: 1 ROD EVERY 3 YEARS
     Route: 059
     Dates: start: 201801

REACTIONS (4)
  - Device deployment issue [Unknown]
  - No adverse event [Unknown]
  - Device issue [Unknown]
  - Complication of device removal [Unknown]

NARRATIVE: CASE EVENT DATE: 201801
